FAERS Safety Report 24373180 (Version 1)
Quarter: 2024Q3

REPORT INFORMATION
  Report Type: Spontaneous
  Country: CN (occurrence: CN)
  Receive Date: 20240927
  Receipt Date: 20240927
  Transmission Date: 20241017
  Serious: Yes (Other)
  Sender: JOHNSON AND JOHNSON
  Company Number: CN-JNJFOC-20240951701

PATIENT

DRUGS (2)
  1. REMICADE [Suspect]
     Active Substance: INFLIXIMAB
     Indication: Rheumatoid arthritis
     Dosage: 200-300 MG/TIME, RECEIVED INTRAVENOUS INFUSION AT WEEK 2, WEEK 6, WEEK 6, WEEK 6, WEEK 6, WEEK 6, AN
     Route: 041
  2. REMICADE [Suspect]
     Active Substance: INFLIXIMAB
     Indication: Ankylosing spondylitis

REACTIONS (26)
  - Hyperpyrexia [Unknown]
  - Pneumonia [Unknown]
  - Upper respiratory tract infection [Unknown]
  - Soft tissue infection [Unknown]
  - Urinary tract infection [Unknown]
  - Hypersensitivity [Unknown]
  - Hepatic function abnormal [Unknown]
  - Infusion related reaction [Unknown]
  - Chills [Unknown]
  - Blood pressure decreased [Unknown]
  - Headache [Unknown]
  - Pyrexia [Unknown]
  - Pruritus [Unknown]
  - Rash [Unknown]
  - Nausea [Unknown]
  - Chest discomfort [Unknown]
  - Skin infection [Unknown]
  - Palpitations [Unknown]
  - Injection site reaction [Unknown]
  - Vertigo [Unknown]
  - Tachypnoea [Unknown]
  - Nervous system disorder [Unknown]
  - Vision blurred [Unknown]
  - Lymphocyte count increased [Unknown]
  - Dermatitis allergic [Unknown]
  - Off label use [Unknown]
